FAERS Safety Report 11020569 (Version 2)
Quarter: 2015Q2

REPORT INFORMATION
  Report Type: Spontaneous
  Country: US (occurrence: US)
  Receive Date: 20150413
  Receipt Date: 20150525
  Transmission Date: 20150821
  Serious: Yes (Other)
  Sender: FDA-Public Use
  Company Number: US-JNJFOC-20130501475

PATIENT
  Sex: Female
  Weight: 54.43 kg

DRUGS (2)
  1. PREDNISONE. [Suspect]
     Active Substance: PREDNISONE
     Indication: SKIN INFECTION
     Route: 048
     Dates: start: 201209, end: 2012
  2. LEVAQUIN [Suspect]
     Active Substance: LEVOFLOXACIN
     Indication: SKIN INFECTION
     Route: 048
     Dates: start: 201209, end: 201209

REACTIONS (3)
  - Rash [Not Recovered/Not Resolved]
  - Photosensitivity reaction [Recovering/Resolving]
  - Pruritus [Not Recovered/Not Resolved]

NARRATIVE: CASE EVENT DATE: 2012
